FAERS Safety Report 5897066-9 (Version None)
Quarter: 2008Q3

REPORT INFORMATION
  Report Type: 
  Country: None (occurrence: None)
  Receive Date: 20080924
  Receipt Date: 20080715
  Transmission Date: 20090109
  Serious: Yes (Other)
  Sender: FDA-Public Use
  Company Number: US-ASTRAZENECA-2008UW14209

PATIENT
  Age: 72 Year
  Sex: Female

DRUGS (2)
  1. SEROQUEL [Suspect]
     Dosage: 50 MG
     Route: 048
     Dates: start: 20080705
  2. ZOLOFT [Concomitant]

REACTIONS (1)
  - GRAND MAL CONVULSION [None]
